FAERS Safety Report 21892764 (Version 2)
Quarter: 2023Q1

REPORT INFORMATION
  Report Type: Spontaneous
  Country: FR (occurrence: FR)
  Receive Date: 20230120
  Receipt Date: 20230227
  Transmission Date: 20230418
  Serious: Yes (Death)
  Sender: FDA-Public Use
  Company Number: FR-BoehringerIngelheim-2023-BI-213387

PATIENT
  Age: 92 Year
  Sex: Female
  Weight: 90 kg

DRUGS (9)
  1. JARDIANCE [Suspect]
     Active Substance: EMPAGLIFLOZIN
     Indication: Diabetes mellitus
     Route: 048
     Dates: start: 202208, end: 20230111
  2. JARDIANCE [Suspect]
     Active Substance: EMPAGLIFLOZIN
     Indication: Renal failure
  3. JARDIANCE [Suspect]
     Active Substance: EMPAGLIFLOZIN
     Indication: Cardiac failure
  4. INSULIN GLARGINE [Concomitant]
     Active Substance: INSULIN GLARGINE
     Indication: Diabetes mellitus
     Dosage: LOW DOSE
     Route: 058
     Dates: start: 202106, end: 20230111
  5. FUROSEMIDE [Concomitant]
     Active Substance: FUROSEMIDE
     Indication: Cardiac failure
     Route: 048
     Dates: start: 202009, end: 20230111
  6. WARFARIN SODIUM [Concomitant]
     Active Substance: WARFARIN SODIUM
     Indication: Atrial fibrillation
     Route: 048
     Dates: end: 20230111
  7. PREDNISOLONE [Concomitant]
     Active Substance: PREDNISOLONE
     Indication: Polyarthritis
     Route: 048
     Dates: start: 202003, end: 20230111
  8. MIANSERIN [Concomitant]
     Active Substance: MIANSERIN
     Indication: Anxiety
     Route: 048
     Dates: start: 202003, end: 20230111
  9. MIANSERIN [Concomitant]
     Active Substance: MIANSERIN
     Indication: Dementia

REACTIONS (1)
  - Extremity necrosis [Fatal]

NARRATIVE: CASE EVENT DATE: 20230111
